FAERS Safety Report 17220573 (Version 1)
Quarter: 2019Q4

REPORT INFORMATION
  Report Type: Report from Study
  Country: ES (occurrence: ES)
  Receive Date: 20191231
  Receipt Date: 20191231
  Transmission Date: 20200122
  Serious: Yes (Hospitalization)
  Sender: FDA-Public Use
  Company Number: ES-MYLANLABS-2019M1132135

PATIENT
  Age: 21 Year
  Sex: Male

DRUGS (7)
  1. VANCOMICINA                        /00314401/ [Concomitant]
     Active Substance: VANCOMYCIN
     Dosage: 1GR/12H || DOSIS UNIDAD FRECUENCIA: 2 G-GRAMOS
     Route: 042
     Dates: start: 20141101
  2. PANTOPRAZOL                        /01263201/ [Concomitant]
     Active Substance: PANTOPRAZOLE
     Dosage: 1 AMP || DOSIS UNIDAD FRECUENCIA: 40 MG
     Route: 042
     Dates: start: 20141027
  3. CLOXACILINA                        /00012001/ [Concomitant]
     Active Substance: CLOXACILLIN
     Dosage: 2GR/4H || DOSIS UNIDAD FRECUENCIA: 12 G
     Route: 042
     Dates: start: 20141106, end: 20141108
  4. PARACETAMOL [Concomitant]
     Active Substance: ACETAMINOPHEN
     Indication: PAIN
     Dosage: 1GR/8H || DOSIS UNIDAD FRECUENCIA: 3 G
     Route: 042
     Dates: start: 20141027
  5. FENTANYL. [Suspect]
     Active Substance: FENTANYL
     Indication: SEDATION
     Dosage: 0.75 MILLIGRAM, QD (0.75 MG EN PC || DOSIS UNIDAD FRECUENCIA: 0.75 MG)
     Route: 042
     Dates: start: 20141104, end: 20141111
  6. PROPOFOL. [Suspect]
     Active Substance: PROPOFOL
     Indication: SEDATION
     Dosage: 1 GR EN PC || DOSIS UNIDAD FRECUENCIA: 1 G
     Route: 042
     Dates: start: 20141104, end: 20141111
  7. ENOXAPARINA [Concomitant]
     Active Substance: ENOXAPARIN
     Indication: PROPHYLAXIS
     Dosage: 1 AMP || DOSIS UNIDAD FRECUENCIA: 40 MG
     Route: 058
     Dates: start: 20141027

REACTIONS (1)
  - Mixed liver injury [Recovering/Resolving]

NARRATIVE: CASE EVENT DATE: 20141111
